FAERS Safety Report 5478346-8 (Version None)
Quarter: 2007Q4

REPORT INFORMATION
  Report Type: 
  Country: None (occurrence: None)
  Receive Date: 20071005
  Receipt Date: 20071004
  Transmission Date: 20080405
  Serious: No
  Sender: FDA-Public Use
  Company Number: A0685421A

PATIENT
  Age: 46 Year
  Sex: Female
  Weight: 56 kg

DRUGS (1)
  1. CEFUROXIME [Suspect]
     Route: 048
     Dates: start: 20070830, end: 20070917

REACTIONS (1)
  - HAEMATOCHEZIA [None]
